FAERS Safety Report 6071058-1 (Version None)
Quarter: 2009Q1

REPORT INFORMATION
  Report Type: 
  Country: None (occurrence: None)
  Receive Date: 20090209
  Receipt Date: 20080717
  Transmission Date: 20090719
  Serious: No
  Sender: FDA-Public Use
  Company Number: A0738184A

PATIENT
  Age: 53 Year
  Sex: Female

DRUGS (3)
  1. PAXIL CR [Suspect]
     Indication: ANXIETY
     Dosage: 37.5MG PER DAY
     Route: 048
     Dates: start: 20080601, end: 20080615
  2. WELLBUTRIN [Concomitant]
  3. GLUCOPHAGE [Concomitant]

REACTIONS (2)
  - FATIGUE [None]
  - PAIN [None]
